FAERS Safety Report 19180486 (Version 1)
Quarter: 2021Q2

REPORT INFORMATION
  Report Type: Report from Study
  Country: CA (occurrence: CA)
  Receive Date: 20210426
  Receipt Date: 20210426
  Transmission Date: 20210717
  Serious: Yes (Hospitalization, Other)
  Sender: FDA-Public Use
  Company Number: CA-PFIZER INC-2021417108

PATIENT
  Sex: Female

DRUGS (3)
  1. RITUXIMAB. [Suspect]
     Active Substance: RITUXIMAB
     Indication: HUMAN HERPES VIRUS 8 TEST POSITIVE
     Dosage: 375 MG/M2, ONCE WEEKLY
     Route: 042
  2. PREDNISONE. [Concomitant]
     Active Substance: PREDNISONE
  3. ETOPOSIDE. [Concomitant]
     Active Substance: ETOPOSIDE
     Dosage: 100 MG/M2
     Route: 065

REACTIONS (7)
  - Delirium [Unknown]
  - Thrombotic thrombocytopenic purpura [Unknown]
  - Myocardial ischaemia [Unknown]
  - Microangiopathy [Unknown]
  - Acute myocardial infarction [Unknown]
  - Castleman^s disease [Unknown]
  - Cognitive disorder [Unknown]
